FAERS Safety Report 20128728 (Version 2)
Quarter: 2022Q1

REPORT INFORMATION
  Report Type: Spontaneous
  Country: VN (occurrence: VN)
  Receive Date: 20211130
  Receipt Date: 20220107
  Transmission Date: 20220423
  Serious: Yes (Death, Hospitalization, Other)
  Sender: FDA-Public Use
  Company Number: VN-SA-SAC20211128000569

PATIENT
  Age: 14 Month
  Sex: Female
  Weight: 8 kg

DRUGS (1)
  1. MYOZYME [Suspect]
     Active Substance: ALGLUCOSIDASE ALFA
     Indication: Glycogen storage disease type II
     Dosage: 20 MG/KG
     Route: 041
     Dates: start: 20201215, end: 20210428

REACTIONS (3)
  - Pneumonia [Fatal]
  - Acute respiratory distress syndrome [Fatal]
  - Disease progression [Fatal]
